FAERS Safety Report 6575588-5 (Version None)
Quarter: 2010Q1

REPORT INFORMATION
  Report Type: 
  Country: None (occurrence: None)
  Receive Date: 20100209
  Receipt Date: 20100204
  Transmission Date: 20100710
  Serious: Yes (Death)
  Sender: FDA-Public Use
  Company Number: A0843000A

PATIENT
  Age: 61 Year
  Sex: Female

DRUGS (5)
  1. SEREVENT [Suspect]
     Indication: CHRONIC OBSTRUCTIVE PULMONARY DISEASE
     Dosage: 1PUFF TWICE PER DAY
     Route: 055
     Dates: start: 20080701, end: 20100122
  2. SPIRIVA [Concomitant]
  3. LEXAPRO [Concomitant]
  4. PROVENTIL [Concomitant]
  5. XANAX [Concomitant]

REACTIONS (1)
  - SUDDEN DEATH [None]
